FAERS Safety Report 10246878 (Version 1)
Quarter: 2014Q2

REPORT INFORMATION
  Report Type: Spontaneous
  Country: US (occurrence: None)
  Receive Date: 20140617
  Receipt Date: 20140617
  Transmission Date: 20141212
  Serious: Yes (Other)
  Sender: FDA-Public Use
  Company Number: None

PATIENT
  Age: 25 Year
  Sex: Female
  Weight: 67.59 kg

DRUGS (1)
  1. ZYRTEC ZYRTEC 10MG [Suspect]
     Indication: SEASONAL ALLERGY
     Dosage: 1 PILL EVERY 24HRS, ONCE DAILY, TAKEN BY MOUTH?3 MONTHS FOR THE PAST 4 TO 6 YRS
     Route: 048

REACTIONS (9)
  - Weight increased [None]
  - Depression [None]
  - Agitation [None]
  - Mood swings [None]
  - Alopecia [None]
  - Drug withdrawal syndrome [None]
  - Insomnia [None]
  - Pruritus generalised [None]
  - Decreased appetite [None]
